FAERS Safety Report 14724310 (Version 2)
Quarter: 2018Q2

REPORT INFORMATION
  Report Type: Spontaneous
  Country: US (occurrence: US)
  Receive Date: 20180405
  Receipt Date: 20180416
  Transmission Date: 20180711
  Serious: Yes (Life-Threatening, Hospitalization, Other)
  Sender: FDA-Public Use
  Company Number: US-TEVA-2018-US-878168

PATIENT
  Age: 49 Year
  Sex: Female

DRUGS (5)
  1. METHYLPREDNISOLONE. [Suspect]
     Active Substance: METHYLPREDNISOLONE
     Indication: IMMUNOSUPPRESSANT DRUG THERAPY
     Route: 042
  2. MYCOPHENOLATE MOFETIL. [Suspect]
     Active Substance: MYCOPHENOLATE MOFETIL
     Indication: IMMUNOSUPPRESSANT DRUG THERAPY
     Dosage: STARTING DOSE, TAPERED DOWN AS THE DIARRHOEA CONTINUED
     Route: 065
  3. ANTI-THYMOCYTE GLOBULIN (RABBIT) NOS [Suspect]
     Active Substance: LAPINE T-LYMPHOCYTE IMMUNE GLOBULIN
     Indication: IMMUNOSUPPRESSANT DRUG THERAPY
     Route: 065
  4. PREDNISONE. [Suspect]
     Active Substance: PREDNISONE
     Indication: IMMUNOSUPPRESSANT DRUG THERAPY
     Route: 065
  5. TACROLIMUS. [Suspect]
     Active Substance: TACROLIMUS
     Indication: IMMUNOSUPPRESSANT DRUG THERAPY
     Dosage: STARTED ON AN UNSPECIFIED DOSE, DOSE WAS REDUCED TO 1MG TWICE DAILY, DOSE INCREASED LATER
     Route: 065

REACTIONS (6)
  - Syncope [Unknown]
  - Clostridium difficile infection [Recovered/Resolved]
  - End stage renal disease [Unknown]
  - Pneumocystis jirovecii pneumonia [Unknown]
  - Gastroenteritis norovirus [Recovered/Resolved]
  - Hypovolaemia [Unknown]
